FAERS Safety Report 4358599-X (Version None)
Quarter: 2004Q2

REPORT INFORMATION
  Report Type: 
  Country: None (occurrence: None)
  Receive Date: 20040514
  Receipt Date: 20040426
  Transmission Date: 20050107
  Serious: No
  Sender: FDA-Public Use
  Company Number: A02200400814

PATIENT
  Age: 73 Year
  Sex: Male

DRUGS (4)
  1. XATRAL - (ALFUZOSIN) - TABLET PR - 5 MG [Suspect]
     Indication: DYSURIA
     Dosage: 10 MG ORAL
     Route: 048
     Dates: start: 20031107, end: 20031210
  2. XATRAL - (ALFUZOSIN) - TABLET PR - 5 MG [Suspect]
     Indication: POLLAKIURIA
     Dosage: 10 MG ORAL
     Route: 048
     Dates: start: 20031107, end: 20031210
  3. HYTACAND (CANDESARTAN CILEXETIL + HYDROCHLOROTHIAZIDE) [Concomitant]
  4. OMEPRAZOLE [Concomitant]

REACTIONS (4)
  - ANGINA PECTORIS [None]
  - CARDIOMEGALY [None]
  - CHEST DISCOMFORT [None]
  - DYSPNOEA EXERTIONAL [None]
